FAERS Safety Report 8254603-7 (Version None)
Quarter: 2012Q1

REPORT INFORMATION
  Report Type: 
  Country: None (occurrence: None)
  Receive Date: 20120329
  Receipt Date: 20120314
  Transmission Date: 20120608
  Serious: Yes (Death, Other)
  Sender: FDA-Public Use
  Company Number: JPI-P-020367

PATIENT
  Age: 65 Year
  Sex: Male

DRUGS (1)
  1. XYREM [Suspect]
     Indication: SLEEP APNOEA SYNDROME
     Dosage: ORAL
     Route: 048
     Dates: start: 20100223

REACTIONS (2)
  - SPINAL CORD NEOPLASM [None]
  - POST PROCEDURAL COMPLICATION [None]
